FAERS Safety Report 9790684 (Version 4)
Quarter: 2014Q1

REPORT INFORMATION
  Report Type: Spontaneous
  Country: DE (occurrence: DE)
  Receive Date: 20131231
  Receipt Date: 20140227
  Transmission Date: 20141002
  Serious: Yes (Other)
  Sender: FDA-Public Use
  Company Number: DE-PFIZER INC-2013371836

PATIENT
  Age: 73 Year
  Sex: Female
  Weight: 53 kg

DRUGS (7)
  1. PANTOPRAZOLE [Suspect]
     Dosage: 40 MG, 1X/DAY
     Route: 048
     Dates: start: 201311, end: 20131202
  2. SILIMARIT KPS [Concomitant]
     Dosage: UNK
  3. SPIRO D [Concomitant]
     Dosage: 100 MG, UNK
  4. ALLOPURINOL [Concomitant]
     Dosage: 300 MG, UNK
  5. L-THYROXIN [Concomitant]
     Dosage: 50 UG, UNK
  6. ONE-ALPHA [Concomitant]
     Dosage: UNK
  7. MIRTAZAPINE [Concomitant]
     Dosage: 30 MG, UNK

REACTIONS (3)
  - Glomerular filtration rate decreased [Recovered/Resolved]
  - Renal failure [Recovered/Resolved]
  - Tubulointerstitial nephritis [Recovered/Resolved]
